FAERS Safety Report 5602866-6 (Version None)
Quarter: 2008Q1

REPORT INFORMATION
  Report Type: 
  Country: None (occurrence: None)
  Receive Date: 20080125
  Receipt Date: 20080115
  Transmission Date: 20080703
  Serious: Yes (Hospitalization, Other)
  Sender: FDA-Public Use
  Company Number: BR-ABBOTT-08P-020-0433668-00

PATIENT
  Sex: Female
  Weight: 67 kg

DRUGS (10)
  1. HUMIRA [Suspect]
     Indication: RHEUMATOID ARTHRITIS
     Dosage: 1 APPLICATION
     Route: 058
     Dates: start: 20060501, end: 20071031
  2. PREDNISONE TAB [Concomitant]
     Indication: RHEUMATOID ARTHRITIS
     Route: 048
  3. PREDNISONE TAB [Concomitant]
     Route: 048
  4. CHLOROQUINE PHOSPHATE [Concomitant]
     Indication: RHEUMATOID ARTHRITIS
     Route: 048
     Dates: start: 20080101
  5. METHOTREXATE [Concomitant]
     Indication: RHEUMATOID ARTHRITIS
     Route: 048
     Dates: end: 20071031
  6. METHOTREXATE [Concomitant]
     Route: 048
     Dates: start: 20080101
  7. AMITRIPTYLINE HCL [Concomitant]
     Indication: DEPRESSION
     Route: 048
  8. CLONAZEPAM [Concomitant]
     Indication: ANXIETY
     Route: 048
  9. DICLOFENAC [Concomitant]
     Indication: PAIN
  10. BETA 30 [Concomitant]
     Indication: RHEUMATOID ARTHRITIS

REACTIONS (8)
  - ANAEMIA [None]
  - ARTHRITIS [None]
  - CANDIDIASIS [None]
  - COMA [None]
  - CONVULSION [None]
  - PNEUMONIA PNEUMOCOCCAL [None]
  - SEPTIC SHOCK [None]
  - URINARY TRACT INFECTION [None]
